FAERS Safety Report 17662435 (Version 2)
Quarter: 2020Q2

REPORT INFORMATION
  Report Type: Spontaneous
  Country: IT (occurrence: IT)
  Receive Date: 20200413
  Receipt Date: 20200617
  Transmission Date: 20200713
  Serious: Yes (Hospitalization, Other)
  Sender: FDA-Public Use
  Company Number: IT-SA-2020SA093477

PATIENT

DRUGS (7)
  1. FUROSEMIDE. [Suspect]
     Active Substance: FUROSEMIDE
     Indication: INTENTIONAL SELF-INJURY
     Dosage: 350 MG, TOTAL
     Route: 048
     Dates: start: 20200101, end: 20200101
  2. JARDIANCE [Suspect]
     Active Substance: EMPAGLIFLOZIN
     Indication: INTENTIONAL SELF-INJURY
     Dosage: 26 DF, TOTAL
     Route: 048
     Dates: start: 20200101, end: 20200101
  3. CARDIOASPIRIN [Concomitant]
     Active Substance: ASPIRIN
     Dosage: UNK
     Route: 065
  4. ROSUVASTATIN CALCIUM. [Suspect]
     Active Substance: ROSUVASTATIN CALCIUM
     Indication: INTENTIONAL SELF-INJURY
     Dosage: 1040 MG, TOTAL
     Route: 048
     Dates: start: 20200101, end: 20200101
  5. AMLODIPINE [Suspect]
     Active Substance: AMLODIPINE BESYLATE
     Indication: INTENTIONAL SELF-INJURY
     Dosage: 60 MG, TOTAL
     Route: 048
     Dates: start: 20200101, end: 20200101
  6. ESOMEPRAZOLE SODIUM. [Suspect]
     Active Substance: ESOMEPRAZOLE SODIUM
     Indication: INTENTIONAL SELF-INJURY
     Dosage: 280 MG, TOTAL
     Route: 048
     Dates: start: 20200101, end: 20200101
  7. INSULIN LISPRO [Suspect]
     Active Substance: INSULIN LISPRO
     Indication: INTENTIONAL SELF-INJURY
     Dosage: 100 IU, TOTAL
     Route: 058
     Dates: start: 20200101, end: 20200101

REACTIONS (2)
  - Drug abuse [Unknown]
  - Bradyphrenia [Unknown]

NARRATIVE: CASE EVENT DATE: 20200101
